FAERS Safety Report 5896972-9 (Version None)
Quarter: 2008Q3

REPORT INFORMATION
  Report Type: 
  Country: None (occurrence: None)
  Receive Date: 20080924
  Receipt Date: 20080206
  Transmission Date: 20090109
  Serious: Yes (Other)
  Sender: FDA-Public Use
  Company Number: US-ASTRAZENECA-2008UW02571

PATIENT
  Age: 47 Year
  Sex: Female

DRUGS (9)
  1. SEROQUEL [Suspect]
     Route: 048
  2. SEROQUEL [Suspect]
     Route: 048
  3. LITHIUM CARBONATE [Concomitant]
  4. ADDERALL 10 [Concomitant]
  5. REMERON [Concomitant]
  6. LORAZEPAM [Concomitant]
  7. INDERAL [Concomitant]
  8. COGENTIN [Concomitant]
  9. ABILIFY [Concomitant]

REACTIONS (1)
  - TARDIVE DYSKINESIA [None]
